FAERS Safety Report 25118797 (Version 1)
Quarter: 2025Q1

REPORT INFORMATION
  Report Type: Spontaneous
  Country: US (occurrence: US)
  Receive Date: 20250325
  Receipt Date: 20250325
  Transmission Date: 20250409
  Serious: Yes (Life-Threatening, Hospitalization, Other)
  Sender: EPIC PHARM
  Company Number: US-EPICPHARMA-US-2025EPCLIT00311

PATIENT
  Age: 71 Year
  Sex: Female

DRUGS (3)
  1. FLECAINIDE ACETATE [Suspect]
     Active Substance: FLECAINIDE ACETATE
     Indication: Atrial fibrillation
     Route: 065
  2. RIVAROXABAN [Concomitant]
     Active Substance: RIVAROXABAN
     Indication: Atrial fibrillation
     Route: 065
  3. MOLNUPIRAVIR [Concomitant]
     Active Substance: MOLNUPIRAVIR
     Indication: COVID-19
     Route: 065

REACTIONS (14)
  - Arrhythmic storm [Recovering/Resolving]
  - Cardiogenic shock [Recovering/Resolving]
  - Cardiac arrest [Recovering/Resolving]
  - Myocardial ischaemia [Recovering/Resolving]
  - Cardiomyopathy [Recovering/Resolving]
  - Septic shock [Recovering/Resolving]
  - Cardiac valve disease [Recovering/Resolving]
  - Lactic acidosis [Recovering/Resolving]
  - Electrocardiogram QRS complex prolonged [Recovered/Resolved]
  - Electrocardiogram QT prolonged [Recovering/Resolving]
  - Dyspnoea [Recovering/Resolving]
  - Orthopnoea [Recovering/Resolving]
  - Toxicity to various agents [Recovering/Resolving]
  - Accidental overdose [Unknown]
